FAERS Safety Report 17917968 (Version 1)
Quarter: 2020Q2

REPORT INFORMATION
  Report Type: Spontaneous
  Country: US (occurrence: US)
  Receive Date: 20200619
  Receipt Date: 20200619
  Transmission Date: 20200714
  Serious: Yes (Hospitalization)
  Sender: FDA-Public Use
  Company Number: US-VIFOR (INTERNATIONAL) INC.-VIT-2020-06540

PATIENT
  Age: 65 Year
  Sex: Male

DRUGS (17)
  1. PRAVASTATIN. [Concomitant]
     Active Substance: PRAVASTATIN
  2. ASPIRIN. [Concomitant]
     Active Substance: ASPIRIN
  3. CALC [Concomitant]
  4. PRAVACHOL [Concomitant]
     Active Substance: PRAVASTATIN SODIUM
  5. VELTASSA [Suspect]
     Active Substance: PATIROMER
     Indication: HYPERKALAEMIA
     Dosage: DISSOLVING 1 PACKET IN 1/3 CUP OF WATER AND DRINKING FULL AMOUNT ONCE DAILY
     Route: 048
     Dates: start: 20170727
  6. NITROSTAT [Concomitant]
     Active Substance: NITROGLYCERIN
  7. FERROUS [Concomitant]
     Active Substance: IRON
  8. CLONIDINE. [Concomitant]
     Active Substance: CLONIDINE
  9. VIRT CAPS [Concomitant]
  10. ZEPATIER [Concomitant]
     Active Substance: ELBASVIR\GRAZOPREVIR
  11. AMOX/K [Concomitant]
  12. BUMETANIDE. [Concomitant]
     Active Substance: BUMETANIDE
  13. ISOSORB [Concomitant]
  14. AMLODIPINE [Concomitant]
     Active Substance: AMLODIPINE BESYLATE
  15. LANTUS [Concomitant]
     Active Substance: INSULIN GLARGINE
  16. MIRALAX [Concomitant]
     Active Substance: POLYETHYLENE GLYCOL 3350
  17. HYDRALAZINE [Concomitant]
     Active Substance: HYDRALAZINE HYDROCHLORIDE

REACTIONS (1)
  - Finger amputation [Not Recovered/Not Resolved]

NARRATIVE: CASE EVENT DATE: 20200605
